FAERS Safety Report 5063792-7 (Version None)
Quarter: 2006Q3

REPORT INFORMATION
  Report Type: 
  Country: None (occurrence: None)
  Receive Date: 20060703
  Receipt Date: 20060420
  Transmission Date: 20061208
  Serious: No
  Sender: FDA-Public Use
  Company Number: 2006S1003752

PATIENT
  Age: 35 Year
  Sex: Male
  Weight: 121.564 kg

DRUGS (14)
  1. CLOZAPINE [Suspect]
     Indication: SCHIZOAFFECTIVE DISORDER
     Dosage: 100 MG; QAM; ORAL; 400 MG; QD; ORAL
     Route: 048
     Dates: start: 20050301
  2. CLOZAPINE [Suspect]
     Indication: SCHIZOAFFECTIVE DISORDER
     Dosage: 100 MG; QAM; ORAL; 400 MG; QD; ORAL
     Route: 048
     Dates: start: 20050301
  3. GEMFIBROZIL [Concomitant]
  4. PERPHENAZINE [Concomitant]
  5. QUETIAPINE FUMARATE [Concomitant]
  6. FAMOTIDINE [Concomitant]
  7. DOCUSATE [Concomitant]
  8. NICOTINIC ACID [Concomitant]
  9. HYOSCYAMINE [Concomitant]
  10. TRAZODONE HCL [Concomitant]
  11. FLUOXETINE HYDROCHLORIDE [Concomitant]
  12. BUPROPION HCL [Concomitant]
  13. VALPROATE SODIUM [Concomitant]
  14. BISACODYL [Concomitant]

REACTIONS (1)
  - GRANULOCYTOPENIA [None]
